FAERS Safety Report 14711715 (Version 1)
Quarter: 2018Q2

REPORT INFORMATION
  Report Type: Spontaneous
  Country: DE (occurrence: DE)
  Receive Date: 20180403
  Receipt Date: 20180403
  Transmission Date: 20180711
  Serious: Yes (Death)
  Sender: FDA-Public Use
  Company Number: PHHY2018DE058040

PATIENT
  Age: 69 Year
  Sex: Female

DRUGS (13)
  1. MYCOPHENOLATE MOFETIL. [Suspect]
     Active Substance: MYCOPHENOLATE MOFETIL
     Indication: RENAL TRANSPLANT
     Dosage: 2000 MG, QD
     Route: 065
  2. SULFAMETHOXAZOLE+TRIMETHOPRIM [Suspect]
     Active Substance: SULFAMETHOXAZOLE\TRIMETHOPRIM
     Indication: ANTIFUNGAL PROPHYLAXIS
     Dosage: 480 MG, QD FOR 6 MONTHS
     Route: 048
  3. METHYLPREDNISOLONE. [Concomitant]
     Active Substance: METHYLPREDNISOLONE
     Indication: RENAL TRANSPLANT
     Dosage: 40 MG, QD
     Route: 065
  4. METHYLPREDNISOLONE. [Concomitant]
     Active Substance: METHYLPREDNISOLONE
     Indication: IMMUNOSUPPRESSANT DRUG THERAPY
     Dosage: 500 MG, UNK
     Route: 042
  5. AMPHOTERICIN B. [Concomitant]
     Active Substance: AMPHOTERICIN B
     Indication: PRODUCT USED FOR UNKNOWN INDICATION
     Dosage: UNK
     Route: 065
  6. RITUXIMAB. [Concomitant]
     Active Substance: RITUXIMAB
     Indication: RENAL TRANSPLANT
     Dosage: 500 MG, ONCE/SINGLE
     Route: 042
  7. BASILIXIMAB [Concomitant]
     Active Substance: BASILIXIMAB
     Indication: RENAL TRANSPLANT
     Dosage: 20 MG, UNK
     Route: 042
  8. MYCOPHENOLATE MOFETIL. [Suspect]
     Active Substance: MYCOPHENOLATE MOFETIL
     Indication: IMMUNOSUPPRESSANT DRUG THERAPY
  9. TACROLIMUS. [Concomitant]
     Active Substance: TACROLIMUS
     Indication: RENAL TRANSPLANT
     Dosage: UNK
     Route: 065
  10. METHYLPREDNISOLONE. [Concomitant]
     Active Substance: METHYLPREDNISOLONE
     Dosage: 250 MG, UNK ON POD1
     Route: 042
  11. TACROLIMUS. [Concomitant]
     Active Substance: TACROLIMUS
     Indication: IMMUNOSUPPRESSANT DRUG THERAPY
  12. METHYLPREDNISOLONE. [Concomitant]
     Active Substance: METHYLPREDNISOLONE
     Dosage: 250 MG, UNK ON POD2
     Route: 042
  13. VALGANCICLOVIR. [Concomitant]
     Active Substance: VALGANCICLOVIR
     Indication: ANTIVIRAL PROPHYLAXIS
     Dosage: UNK FOR 3 MONTHS
     Route: 065

REACTIONS (3)
  - Sepsis [Fatal]
  - Multiple organ dysfunction syndrome [Fatal]
  - Hepatic cyst infection [Fatal]
